FAERS Safety Report 4809000-0 (Version None)
Quarter: 2005Q4

REPORT INFORMATION
  Report Type: 
  Country: None (occurrence: None)
  Receive Date: 20051021
  Receipt Date: 20011126
  Transmission Date: 20060501
  Serious: Yes (Other)
  Sender: FDA-Public Use
  Company Number: US_011178035

PATIENT
  Age: 52 Year
  Sex: Male
  Weight: 55 kg

DRUGS (8)
  1. ZYPREXA [Suspect]
     Indication: SCHIZOPHRENIA
     Dosage: 20 MG/DAY
     Route: 048
     Dates: start: 20011024, end: 20011126
  2. RISPERDAL [Concomitant]
  3. DEPAKENE [Concomitant]
  4. AKINETON [Concomitant]
  5. DORAL [Concomitant]
  6. DIAZEPAM [Concomitant]
  7. NITRAZEPAM [Concomitant]
  8. UBRETID (DISTIGMINE BROMIDE) [Concomitant]

REACTIONS (1)
  - PLATELET COUNT DECREASED [None]
